FAERS Safety Report 11217065 (Version 2)
Quarter: 2015Q4

REPORT INFORMATION
  Report Type: Spontaneous
  Country: AR (occurrence: AR)
  Receive Date: 20150624
  Receipt Date: 20151203
  Transmission Date: 20160304
  Serious: Yes (Death, Other)
  Sender: FDA-Public Use
  Company Number: AR-INCYTE CORPORATION-2015IN002872

PATIENT
  Sex: Male

DRUGS (1)
  1. JAKAFI [Suspect]
     Active Substance: RUXOLITINIB
     Indication: MYELOFIBROSIS
     Dosage: 15 MG, BID
     Route: 048
     Dates: start: 20150428

REACTIONS (4)
  - Pneumonia [Unknown]
  - White blood cell count increased [Fatal]
  - Thrombocytopenia [Unknown]
  - No therapeutic response [Fatal]
